FAERS Safety Report 25847178 (Version 1)
Quarter: 2025Q3

REPORT INFORMATION
  Report Type: Spontaneous
  Country: US (occurrence: US)
  Receive Date: 20250925
  Receipt Date: 20250925
  Transmission Date: 20251021
  Serious: No
  Sender: VERTEX
  Company Number: US-VERTEX PHARMACEUTICALS-2025-015648

PATIENT

DRUGS (2)
  1. SUZETRIGINE [Suspect]
     Active Substance: SUZETRIGINE
     Indication: Pain
     Route: 048
  2. SUZETRIGINE [Suspect]
     Active Substance: SUZETRIGINE
     Indication: Joint arthroplasty

REACTIONS (2)
  - Rash [Recovered/Resolved]
  - Off label use [Unknown]
